FAERS Safety Report 8153808-3 (Version None)
Quarter: 2012Q1

REPORT INFORMATION
  Report Type: 
  Country: None (occurrence: None)
  Receive Date: 20120221
  Receipt Date: 20120215
  Transmission Date: 20120608
  Serious: Yes (Hospitalization)
  Sender: FDA-Public Use
  Company Number: JP-GLAXOSMITHKLINE-B0782272A

PATIENT
  Age: 37 Year
  Sex: Female

DRUGS (6)
  1. ALPRAZOLAM [Concomitant]
     Route: 048
  2. DEPAS [Concomitant]
     Route: 048
  3. LORAZEPAM [Concomitant]
     Route: 048
  4. LAMICTAL [Suspect]
     Indication: BIPOLAR DISORDER
     Dosage: 25MG PER DAY
     Route: 048
     Dates: start: 20120116, end: 20120129
  5. LAMICTAL [Suspect]
     Dosage: 50MG PER DAY
     Route: 048
     Dates: start: 20120130, end: 20120211
  6. LITHIUM CARBONATE [Concomitant]
     Route: 048

REACTIONS (2)
  - DRUG RASH WITH EOSINOPHILIA AND SYSTEMIC SYMPTOMS [None]
  - DECREASED APPETITE [None]
